FAERS Safety Report 6427557-3 (Version None)
Quarter: 2009Q4

REPORT INFORMATION
  Report Type: 
  Country: None (occurrence: None)
  Receive Date: 20091030
  Receipt Date: 20091012
  Transmission Date: 20100525
  Serious: Yes (Hospitalization)
  Sender: FDA-Public Use
  Company Number: 20090465

PATIENT
  Age: 50 Year
  Sex: Male

DRUGS (4)
  1. METHYLENE BLUE INJECTION, USP (0310-10) 10 MG/ML [Suspect]
     Indication: RADIOTHERAPY
     Dosage: 100 MG DAILY X 2 INTRAVENOUS
     Route: 042
  2. DAPSONE [Concomitant]
  3. CIMETIDINE [Concomitant]
  4. TEMOZOLOMIDE [Concomitant]

REACTIONS (1)
  - HAEMOLYTIC ANAEMIA [None]
